FAERS Safety Report 9456838 (Version 2)
Quarter: 2013Q3

REPORT INFORMATION
  Report Type: Report from Study
  Country: US (occurrence: US)
  Receive Date: 20130813
  Receipt Date: 20130911
  Transmission Date: 20140515
  Serious: Yes (Death, Hospitalization, Disabling, Other)
  Sender: FDA-Public Use
  Company Number: US-EXELIXIS-XL18413002466

PATIENT
  Age: 84 Year
  Sex: Male
  Weight: 67.57 kg

DRUGS (16)
  1. XL184 [Suspect]
     Indication: PROSTATE CANCER
     Dosage: 60 MG, QD
     Route: 048
     Dates: start: 20130102, end: 20130314
  2. XL184 [Suspect]
     Indication: PROSTATE CANCER
     Dosage: 5 MG, BID
     Route: 048
     Dates: start: 20130102, end: 20130314
  3. FENTANYL [Concomitant]
  4. BUPROPION [Concomitant]
  5. SIMVASTATIN [Concomitant]
  6. POTASSIUM [Concomitant]
  7. LASIX [Concomitant]
  8. GABAPENTIN [Concomitant]
  9. CORTEF [Concomitant]
  10. METOPROLOL [Concomitant]
  11. METFORMIN [Concomitant]
  12. MELOXICAM [Concomitant]
  13. PERCOCET [Concomitant]
  14. MUGARD [Concomitant]
  15. PROCRIT [Concomitant]
  16. ECONAZOLE NITRATE [Concomitant]

REACTIONS (6)
  - Dehydration [Not Recovered/Not Resolved]
  - Fatigue [Not Recovered/Not Resolved]
  - Atrial fibrillation [Not Recovered/Not Resolved]
  - Oral candidiasis [Not Recovered/Not Resolved]
  - Anaemia [Not Recovered/Not Resolved]
  - Prostate cancer metastatic [Fatal]
